FAERS Safety Report 9408023 (Version 2)
Quarter: 2013Q3

REPORT INFORMATION
  Report Type: Report from Study
  Country: BR (occurrence: BR)
  Receive Date: 20130718
  Receipt Date: 20130828
  Transmission Date: 20140515
  Serious: Yes (Other)
  Sender: FDA-Public Use
  Company Number: BR-ROCHE-1247539

PATIENT
  Sex: Male

DRUGS (13)
  1. XOLAIR [Suspect]
     Indication: BRONCHITIS
     Dosage: 15
     Route: 042
  2. XOLAIR [Interacting]
     Indication: OFF LABEL USE
  3. BUSONID [Concomitant]
  4. ALENIA (BRAZIL) [Concomitant]
  5. PREDNISONE [Concomitant]
  6. AVAMYS [Concomitant]
  7. RINOSORO [Concomitant]
  8. APRESOLINA [Concomitant]
  9. MICARDIS [Concomitant]
     Dosage: 80/25 MG
     Route: 065
  10. AMLODIPINE [Concomitant]
  11. APRAZ [Concomitant]
     Route: 065
  12. AMITRIPTYLINE [Concomitant]
     Route: 065
  13. LANSOPRAZOLE [Concomitant]

REACTIONS (9)
  - Chronic sinusitis [Not Recovered/Not Resolved]
  - Local swelling [Not Recovered/Not Resolved]
  - Insomnia [Not Recovered/Not Resolved]
  - Dyspnoea exertional [Not Recovered/Not Resolved]
  - Nervousness [Not Recovered/Not Resolved]
  - Fatigue [Not Recovered/Not Resolved]
  - Bronchitis chronic [Recovering/Resolving]
  - Rhinitis [Not Recovered/Not Resolved]
  - Incorrect route of drug administration [Unknown]
